FAERS Safety Report 8613579-0 (Version None)
Quarter: 2012Q3

REPORT INFORMATION
  Report Type: 
  Country: None (occurrence: None)
  Receive Date: 20120823
  Receipt Date: 20120813
  Transmission Date: 20120928
  Serious: Yes (Hospitalization, Other)
  Sender: FDA-Public Use
  Company Number: DE-AMGEN-DEUCT2012047651

PATIENT
  Age: 79 Year
  Sex: Female

DRUGS (5)
  1. METHOTREXATE SODIUM [Suspect]
     Dosage: 25 MG, WEEKLY
     Dates: start: 20100601, end: 20110801
  2. CHLOROQUINE PHOSPHATE [Concomitant]
     Dosage: 250 MG, 1X/DAY
     Dates: start: 19900101, end: 20120101
  3. ETANERCEPT [Suspect]
     Indication: RHEUMATOID ARTHRITIS
     Dosage: 50 MG, WEEKLY
     Dates: start: 20110127, end: 20110801
  4. PREDNISONE TAB [Concomitant]
     Dosage: UNK
  5. AZULFIDINE [Concomitant]
     Dosage: 1000 MG, 2X/DAY
     Dates: start: 20000101, end: 20120101

REACTIONS (3)
  - RENAL FAILURE [None]
  - WOUND INFECTION STAPHYLOCOCCAL [None]
  - SPINAL DISORDER [None]
